FAERS Safety Report 6566687-2 (Version None)
Quarter: 2010Q1

REPORT INFORMATION
  Report Type: 
  Country: None (occurrence: None)
  Receive Date: 20100202
  Receipt Date: 20100122
  Transmission Date: 20100710
  Serious: Yes (Other)
  Sender: FDA-Public Use
  Company Number: US-SANOFI-AVENTIS-A03200904154

PATIENT
  Age: 74 Year
  Sex: Female
  Weight: 94.8 kg

DRUGS (11)
  1. DRONEDARONE [Suspect]
     Indication: ATRIAL FIBRILLATION
     Dosage: UNIT DOSE: 400 MG
     Route: 048
     Dates: start: 20090801
  2. TOPROL-XL [Suspect]
     Indication: ATRIAL FIBRILLATION
     Dosage: UNIT DOSE: 50 MG
     Route: 048
  3. TOPROL-XL [Suspect]
     Route: 048
  4. HYDRALAZINE [Concomitant]
     Dosage: UNIT DOSE: 5 MG
     Route: 048
  5. SYNTHROID [Concomitant]
     Indication: HYPOTHYROIDISM
     Dosage: UNIT DOSE: .112 UNK
     Route: 048
  6. COUMADIN [Concomitant]
     Indication: ATRIAL FIBRILLATION
     Dosage: DOSE TEXT: 2.5 AND 5MG ALTERNATING DAILY
     Route: 048
  7. COUMADIN [Concomitant]
     Route: 048
  8. DARVOCET-N 100 [Concomitant]
     Dosage: UNIT DOSE: 2 DF
     Route: 048
  9. DARVOCET-N 100 [Concomitant]
     Indication: FIBROMYALGIA
     Dosage: UNIT DOSE: 2 DF
     Route: 048
  10. RESTORIL [Concomitant]
     Dosage: UNIT DOSE: 2 DF
     Route: 048
  11. LISINOPRIL [Concomitant]
     Route: 065

REACTIONS (10)
  - ABDOMINAL DISTENSION [None]
  - ATRIAL FIBRILLATION [None]
  - CHEST DISCOMFORT [None]
  - CONSTIPATION [None]
  - DIARRHOEA [None]
  - FATIGUE [None]
  - INCREASED APPETITE [None]
  - OEDEMA PERIPHERAL [None]
  - URINE OUTPUT DECREASED [None]
  - WEIGHT INCREASED [None]
